FAERS Safety Report 21222658 (Version 2)
Quarter: 2022Q4

REPORT INFORMATION
  Report Type: Spontaneous
  Country: US (occurrence: None)
  Receive Date: 20220817
  Receipt Date: 20221012
  Transmission Date: 20230113
  Serious: No
  Sender: FDA-Public Use
  Company Number: 2022A279166

PATIENT
  Age: 919 Month
  Weight: 96.2 kg

DRUGS (5)
  1. BYDUREON BCISE [Suspect]
     Active Substance: EXENATIDE
     Indication: Diabetes mellitus
     Route: 058
  2. FENTANYL [Concomitant]
     Active Substance: FENTANYL
     Route: 065
  3. GABAPENTIN [Concomitant]
     Active Substance: GABAPENTIN
     Route: 065
  4. ALLOPURINOL [Concomitant]
     Active Substance: ALLOPURINOL
     Route: 065
  5. OXYBUTYNIN [Concomitant]
     Active Substance: OXYBUTYNIN
     Route: 065

REACTIONS (7)
  - Herpes zoster [Unknown]
  - Injection site discolouration [Unknown]
  - Injection site pain [Unknown]
  - Pruritus [Unknown]
  - Pain [Unknown]
  - Device malfunction [Unknown]
  - Needle issue [Unknown]

NARRATIVE: CASE EVENT DATE: 20220601
